FAERS Safety Report 11112798 (Version 8)
Quarter: 2016Q1

REPORT INFORMATION
  Report Type: Report from Study
  Country: US (occurrence: US)
  Receive Date: 20150514
  Receipt Date: 20160203
  Transmission Date: 20160525
  Serious: Yes (Hospitalization)
  Sender: FDA-Public Use
  Company Number: PHHY2015US035365

PATIENT
  Age: 59 Year
  Sex: Female
  Weight: 59 kg

DRUGS (4)
  1. GENERIC LETROZOLE [Suspect]
     Active Substance: LETROZOLE
     Indication: BREAST CANCER METASTATIC
     Dosage: 2.5 MG, QD
     Route: 048
     Dates: start: 20141114, end: 20150126
  2. AZITHROMYCIN ANHYDROUS. [Suspect]
     Active Substance: AZITHROMYCIN ANHYDROUS
     Indication: SINUSITIS
     Dosage: 500 MG, QD
     Route: 048
     Dates: start: 20141030, end: 20141111
  3. PALBOCICLIB [Suspect]
     Active Substance: PALBOCICLIB
     Indication: BREAST CANCER METASTATIC
     Dosage: 125 MG, CYCLIC (ONCE DAILY, 3 WEEKS ON/1 WEEK OFF, EVERY 28 DAYS CYCLE)
     Route: 048
     Dates: start: 20141114, end: 20150111
  4. KYTRIL [Concomitant]
     Active Substance: GRANISETRON HYDROCHLORIDE
     Indication: NAUSEA
     Dosage: 1 MG, PRN
     Route: 048

REACTIONS (13)
  - Hepatic enzyme abnormal [Recovering/Resolving]
  - Diarrhoea [Not Recovered/Not Resolved]
  - Metastases to liver [Unknown]
  - Abdominal pain [Unknown]
  - Gastrointestinal toxicity [Recovered/Resolved with Sequelae]
  - Clostridium difficile colitis [Recovered/Resolved with Sequelae]
  - Malignant neoplasm progression [Recovering/Resolving]
  - Breast cancer metastatic [Recovering/Resolving]
  - Urinary tract infection [Unknown]
  - Intestinal dilatation [Not Recovered/Not Resolved]
  - Pyrexia [Unknown]
  - Abdominal distension [Not Recovered/Not Resolved]
  - Ascites [Recovering/Resolving]

NARRATIVE: CASE EVENT DATE: 20150128
